FAERS Safety Report 7711020-3 (Version None)
Quarter: 2011Q3

REPORT INFORMATION
  Report Type: 
  Country: None (occurrence: None)
  Receive Date: 20110825
  Receipt Date: 20110812
  Transmission Date: 20111222
  Serious: Yes (Other)
  Sender: FDA-Public Use
  Company Number: FR-MYLANLABS-2011S1017045

PATIENT
  Age: 36 Year
  Sex: Male

DRUGS (6)
  1. FLUOXETINE [Interacting]
     Route: 065
  2. METHADONE HCL [Suspect]
     Indication: DRUG DEPENDENCE
     Dosage: 50MG DAILY
     Route: 065
  3. AMISULPRIDE [Suspect]
     Route: 065
  4. TRIMEPRAZINE TAB [Suspect]
     Route: 065
  5. CODEINE SULFATE [Concomitant]
     Route: 065
  6. MIANSERIN [Suspect]
     Route: 065

REACTIONS (2)
  - ELECTROCARDIOGRAM QT PROLONGED [None]
  - DRUG INTERACTION [None]
